FAERS Safety Report 7773857-4 (Version None)
Quarter: 2011Q3

REPORT INFORMATION
  Report Type: 
  Country: None (occurrence: None)
  Receive Date: 20110920
  Receipt Date: 20110916
  Transmission Date: 20111222
  Serious: Yes (Life-Threatening, Hospitalization)
  Sender: FDA-Public Use
  Company Number: 2011SP037491

PATIENT
  Age: 44 Year
  Sex: Female

DRUGS (10)
  1. PROPOFOL [Suspect]
     Indication: PRODUCT USED FOR UNKNOWN INDICATION
     Dosage: IV
     Route: 042
     Dates: start: 20110608, end: 20110608
  2. KETAMINE HCL [Suspect]
     Indication: PRODUCT USED FOR UNKNOWN INDICATION
     Dosage: IV
     Route: 042
     Dates: start: 20110608, end: 20110608
  3. SINGULAIR [Concomitant]
  4. SPIRIVA [Concomitant]
  5. VENTOLIN [Concomitant]
  6. CEFAMANDOLE NAFATE [Suspect]
     Indication: PRODUCT USED FOR UNKNOWN INDICATION
     Dosage: IV
     Route: 042
     Dates: start: 20110608, end: 20110608
  7. ULTIVA [Suspect]
     Indication: PRODUCT USED FOR UNKNOWN INDICATION
     Dosage: IV
     Route: 042
     Dates: start: 20110608, end: 20110608
  8. SERETIDE [Concomitant]
  9. NORCURON [Suspect]
     Indication: PRODUCT USED FOR UNKNOWN INDICATION
     Dosage: ONCE IV
     Route: 042
     Dates: start: 20110608, end: 20110608
  10. EPHEDRINE SUL CAP [Concomitant]

REACTIONS (2)
  - LEUKOTRIENE INCREASED [None]
  - CIRCULATORY COLLAPSE [None]
